FAERS Safety Report 5507021-6 (Version None)
Quarter: 2007Q4

REPORT INFORMATION
  Report Type: 
  Country: None (occurrence: None)
  Receive Date: 20071105
  Receipt Date: 20071029
  Transmission Date: 20080405
  Serious: Yes (Other)
  Sender: FDA-Public Use
  Company Number: DE-BOEHRINGER INGELHEIM PHARMACEUTICALS, INC.-2007-DE-06359GD

PATIENT

DRUGS (2)
  1. CLONIDINE [Suspect]
     Indication: DRUG WITHDRAWAL SYNDROME
     Dosage: MEDIAN DOSE 3 MCG/KG, STARTING DOSE 2 MCG/KG, ADAPTED ON DEMAND TO 5 MCG/KG
  2. OPIOIDS [Concomitant]
     Indication: PAIN

REACTIONS (1)
  - DRUG INEFFECTIVE [None]
